FAERS Safety Report 4750375-9 (Version None)
Quarter: 2005Q3

REPORT INFORMATION
  Report Type: 
  Country: None (occurrence: None)
  Receive Date: 20050819
  Receipt Date: 20050819
  Transmission Date: 20060218
  Serious: Yes (Death)
  Sender: FDA-Public Use
  Company Number: None

PATIENT
  Sex: Male
  Weight: 110 kg

DRUGS (7)
  1. DOXORUBICIN [Suspect]
     Indication: HODGKIN'S DISEASE
     Dosage: SEE IMAGE
     Route: 042
     Dates: start: 20040602
  2. VINBLASTINE [Suspect]
     Dosage: SEE IMAGE
     Route: 042
     Dates: start: 20040602
  3. VINCRISTINE [Suspect]
     Dosage: SEE IMAGE
     Route: 042
     Dates: start: 20040602
  4. BLEOMYCIN [Suspect]
     Dosage: SEE IMAGE
     Route: 042
     Dates: start: 20040602, end: 20040729
  5. CYCLOPHOSPHAMIDE [Suspect]
     Dosage: SEE IMAGE
     Dates: start: 20040602
  6. VP-16 [Suspect]
     Dosage: SEE IMAGE
     Route: 042
     Dates: start: 20040602
  7. PREDNISONE TAB [Suspect]
     Dosage: SEE IMAGE
     Dates: start: 20040602

REACTIONS (6)
  - CARDIOMYOPATHY [None]
  - DYSPNOEA [None]
  - INFECTION [None]
  - PANCYTOPENIA [None]
  - PULMONARY FUNCTION TEST DECREASED [None]
  - RESPIRATORY FAILURE [None]
